FAERS Safety Report 26130338 (Version 1)
Quarter: 2025Q4

REPORT INFORMATION
  Report Type: Spontaneous
  Country: US (occurrence: US)
  Receive Date: 20251208
  Receipt Date: 20251208
  Transmission Date: 20260117
  Serious: Yes (Life-Threatening, Hospitalization)
  Sender: MYLAN
  Company Number: US-MYLANLABS-2025M1103648

PATIENT
  Age: 33 Year
  Sex: Male

DRUGS (1)
  1. FENTANYL [Suspect]
     Active Substance: FENTANYL
     Indication: Product used for unknown indication
     Dosage: UNK

REACTIONS (7)
  - Toxic leukoencephalopathy [Recovering/Resolving]
  - Rhabdomyolysis [Recovering/Resolving]
  - Acute respiratory failure [Recovering/Resolving]
  - Accidental overdose [Recovering/Resolving]
  - Locked-in syndrome [Recovering/Resolving]
  - Fall [Recovered/Resolved]
  - Loss of personal independence in daily activities [Recovered/Resolved]
